FAERS Safety Report 7411906-3 (Version None)
Quarter: 2011Q2

REPORT INFORMATION
  Report Type: 
  Country: None (occurrence: None)
  Receive Date: 20110405
  Receipt Date: 20110317
  Transmission Date: 20111010
  Serious: Yes (Death)
  Sender: FDA-Public Use
  Company Number: 2011P1005290

PATIENT
  Age: 56 Year
  Sex: Female

DRUGS (11)
  1. SIMVASTATIN [Suspect]
     Dosage: PO
     Route: 048
  2. ETHANOL (NO PREF. NAME) [Suspect]
     Dosage: PO
     Route: 048
  3. VENLAFAXINE [Suspect]
     Dosage: PO
     Route: 048
  4. TRAMADOL (NO PREF. NAME) [Suspect]
     Dosage: PO
     Route: 048
  5. OXYCONTIN [Suspect]
     Dosage: PO
     Route: 048
  6. METFORMIN (NO PREF. NAME) [Suspect]
     Dosage: PO
     Route: 048
  7. LISINOPRIL [Suspect]
     Dosage: PO
     Route: 048
  8. CLONAZEPAM [Suspect]
     Dosage: PO
     Route: 048
  9. MELOXICAM [Suspect]
     Dosage: PO
     Route: 048
  10. PROMETHAZINE [Suspect]
     Dosage: PO
     Route: 048
  11. OXYCONTIN [Suspect]
     Dosage: PO
     Route: 048

REACTIONS (1)
  - INTENTIONAL DRUG MISUSE [None]
